FAERS Safety Report 5601128-0 (Version None)
Quarter: 2008Q1

REPORT INFORMATION
  Report Type: 
  Country: None (occurrence: None)
  Receive Date: 20080118
  Receipt Date: 20080109
  Transmission Date: 20080703
  Serious: Yes (Death, Hospitalization)
  Sender: FDA-Public Use
  Company Number: PAR_01823_2007

PATIENT
  Sex: Female

DRUGS (14)
  1. LISINOPRIL [Suspect]
     Indication: BLOOD PRESSURE
     Dosage: (10 MG QD ORAL)
     Route: 048
     Dates: start: 20030101
  2. CLOPIDOGREL BISULFATE [Suspect]
     Indication: MYOCARDIAL INFARCTION
     Dosage: (75 MG QD ORAL)
     Route: 048
     Dates: start: 20030901, end: 20031001
  3. CLOPIDOGREL BISULFATE [Suspect]
     Indication: PROPHYLAXIS
     Dosage: (75 MG QD ORAL)
     Route: 048
     Dates: start: 20030901, end: 20031001
  4. CLOPIDOGREL BISULFATE [Suspect]
     Indication: STENT PLACEMENT
     Dosage: (75 MG QD ORAL)
     Route: 048
     Dates: start: 20030901, end: 20031001
  5. CYCLOSPORINE [Suspect]
     Indication: TRANSPLANT REJECTION
     Dosage: (65 MG BID ORAL)
     Route: 048
     Dates: start: 19900101, end: 20031001
  6. CYCLOSPORINE [Suspect]
     Indication: TRANSPLANT REJECTION
     Dosage: (65 MG BID ORAL)
     Route: 048
     Dates: start: 20030101
  7. ATORVASTATIN (LIPITOR ATORVASTATIN) [Suspect]
     Indication: DYSLIPIDAEMIA
     Dosage: 80 MG QD  (GRADUALLY TITRATED TO 80 MG DAILY OVER 15 MONTHS) ORAL), (80 MG QD ORAL)
     Route: 048
     Dates: start: 19970101, end: 20031001
  8. ATORVASTATIN (LIPITOR ATORVASTATIN) [Suspect]
     Indication: MYOCARDIAL INFARCTION
     Dosage: 80 MG QD  (GRADUALLY TITRATED TO 80 MG DAILY OVER 15 MONTHS) ORAL), (80 MG QD ORAL)
     Route: 048
     Dates: start: 19970101, end: 20031001
  9. ATORVASTATIN (LIPITOR ATORVASTATIN) [Suspect]
     Indication: DYSLIPIDAEMIA
     Dosage: 80 MG QD  (GRADUALLY TITRATED TO 80 MG DAILY OVER 15 MONTHS) ORAL), (80 MG QD ORAL)
     Route: 048
     Dates: start: 20030101
  10. ATORVASTATIN (LIPITOR ATORVASTATIN) [Suspect]
     Indication: MYOCARDIAL INFARCTION
     Dosage: 80 MG QD  (GRADUALLY TITRATED TO 80 MG DAILY OVER 15 MONTHS) ORAL), (80 MG QD ORAL)
     Route: 048
     Dates: start: 20030101
  11. PREDNISONE TAB [Suspect]
     Indication: CORONARY ARTERIAL STENT INSERTION
     Dosage: (2.5 MG QD)
     Dates: start: 20030101
  12. AZATHIOPRINE [Suspect]
     Indication: HEART TRANSPLANT
     Dosage: (25 MG QOD ORAL)
     Route: 048
     Dates: start: 20030101
  13. AZATHIOPRINE [Suspect]
     Indication: IMMUNOSUPPRESSION
     Dosage: (25 MG QOD ORAL)
     Route: 048
     Dates: start: 20030101
  14. ACETYLSALICYLIC ACID SRT [Suspect]
     Indication: PROPHYLAXIS
     Dosage: (DF)

REACTIONS (8)
  - BLOOD CHOLESTEROL INCREASED [None]
  - BLOOD TRIGLYCERIDES INCREASED [None]
  - COMPLICATIONS OF TRANSPLANTED HEART [None]
  - CONCOMITANT DISEASE PROGRESSION [None]
  - CORONARY ARTERY DISEASE [None]
  - IMMUNOSUPPRESSANT DRUG LEVEL INCREASED [None]
  - RENAL FAILURE ACUTE [None]
  - RHABDOMYOLYSIS [None]
